FAERS Safety Report 5637786-4 (Version None)
Quarter: 2008Q1

REPORT INFORMATION
  Report Type: 
  Country: None (occurrence: None)
  Receive Date: 20080219
  Receipt Date: 20080213
  Transmission Date: 20080703
  Serious: Yes (Other)
  Sender: FDA-Public Use
  Company Number: SP01800

PATIENT
  Age: 41 Year
  Sex: Male

DRUGS (1)
  1. OSMOPREP [Suspect]
     Indication: COLONOSCOPY
     Dosage: 12 GM, ORAL
     Route: 048
     Dates: start: 20080212, end: 20080212

REACTIONS (5)
  - DYSPHAGIA [None]
  - DYSPNOEA [None]
  - LIP SWELLING [None]
  - OROPHARYNGEAL BLISTERING [None]
  - PARAESTHESIA ORAL [None]
